FAERS Safety Report 18564362 (Version 1)
Quarter: 2020Q4

REPORT INFORMATION
  Report Type: Spontaneous
  Country: IT (occurrence: IT)
  Receive Date: 20201201
  Receipt Date: 20201201
  Transmission Date: 20210114
  Serious: Yes (Hospitalization, Other)
  Sender: FDA-Public Use
  Company Number: IT-HQ SPECIALTY-IT-2020INT000133

PATIENT
  Age: 54 Year
  Sex: Male

DRUGS (3)
  1. GEMCITABINE. [Suspect]
     Active Substance: GEMCITABINE
     Indication: BLADDER CANCER
     Dosage: 1000 MG/MQ, DAY 1, Q21 DAYS, 3 CYCLES
     Route: 065
  2. GEMCITABINE. [Suspect]
     Active Substance: GEMCITABINE
     Dosage: 1000 MG/MQ, DAY 1, 8, Q21 DAYS, 1 CYCLE
     Route: 065
  3. CISPLATIN. [Suspect]
     Active Substance: CISPLATIN
     Indication: BLADDER CANCER
     Dosage: 80 MG/MQ, DAY 1, Q21 DAYS, 4 CYCLES
     Route: 065

REACTIONS (1)
  - Capillary leak syndrome [Recovered/Resolved]
